FAERS Safety Report 8089570-2 (Version None)
Quarter: 2012Q1

REPORT INFORMATION
  Report Type: 
  Country: None (occurrence: None)
  Receive Date: 20120128
  Receipt Date: 20110616
  Transmission Date: 20120608
  Serious: Yes (Hospitalization)
  Sender: FDA-Public Use
  Company Number: US-ABBOTT-11P-163-0733446-00

PATIENT
  Sex: Female
  Weight: 68.1 kg

DRUGS (4)
  1. PLAVIX [Concomitant]
     Indication: CORONARY ARTERIAL STENT INSERTION
  2. HUMIRA [Suspect]
     Indication: RHEUMATOID ARTHRITIS
     Dates: start: 20091101
  3. METHOTREXATE [Concomitant]
     Indication: RHEUMATOID ARTHRITIS
  4. PLAQUENIL [Concomitant]
     Indication: RHEUMATOID ARTHRITIS

REACTIONS (3)
  - ARTHRITIS [None]
  - DEHYDRATION [None]
  - PNEUMONIA [None]
